FAERS Safety Report 6170795-8 (Version None)
Quarter: 2009Q2

REPORT INFORMATION
  Report Type: 
  Country: None (occurrence: None)
  Receive Date: 20090428
  Receipt Date: 20090330
  Transmission Date: 20091009
  Serious: Yes (Death)
  Sender: FDA-Public Use
  Company Number: US-GENENTECH-280999

PATIENT

DRUGS (7)
  1. RITUXIMAB [Suspect]
     Indication: MANTLE CELL LYMPHOMA
     Route: 042
  2. CYCLOPHOSPHAMIDE [Suspect]
     Indication: MANTLE CELL LYMPHOMA
  3. DOXORUBICIN HCL [Suspect]
     Indication: MANTLE CELL LYMPHOMA
  4. VINCRISTINE [Suspect]
     Indication: MANTLE CELL LYMPHOMA
  5. PREDNISONE [Suspect]
     Indication: MANTLE CELL LYMPHOMA
  6. METHOTREXATE [Suspect]
     Indication: MANTLE CELL LYMPHOMA
  7. CYTARABINE [Suspect]
     Indication: MANTLE CELL LYMPHOMA

REACTIONS (1)
  - DEATH [None]
